FAERS Safety Report 14313929 (Version 2)
Quarter: 2018Q1

REPORT INFORMATION
  Report Type: Report from Study
  Country: FR (occurrence: FR)
  Receive Date: 20171221
  Receipt Date: 20180215
  Transmission Date: 20180509
  Serious: Yes (Death, Hospitalization)
  Sender: FDA-Public Use
  Company Number: FR-AUROBINDO-AUR-APL-2017-45721

PATIENT
  Age: 58 Year
  Sex: Male
  Weight: 62 kg

DRUGS (2)
  1. AZITHROMYCIN ANHYDROUS. [Suspect]
     Active Substance: AZITHROMYCIN ANHYDROUS
     Indication: INFECTION PROPHYLAXIS
     Dosage: 250 MG, PER DAY, THREE TIMES A WEEK FOR EIGHT MONTHS
     Route: 048
     Dates: start: 20150406, end: 20151111
  2. AZITHROMYCIN ANHYDROUS. [Suspect]
     Active Substance: AZITHROMYCIN ANHYDROUS
     Indication: OBLITERATIVE BRONCHIOLITIS

REACTIONS (5)
  - Pyrexia [Unknown]
  - Marrow hyperplasia [Unknown]
  - Diarrhoea [Unknown]
  - Septic shock [Fatal]
  - Actinomycotic pulmonary infection [Unknown]

NARRATIVE: CASE EVENT DATE: 20150610
